FAERS Safety Report 15563382 (Version 5)
Quarter: 2020Q2

REPORT INFORMATION
  Report Type: Report from Study
  Country: US (occurrence: US)
  Receive Date: 20181029
  Receipt Date: 20200626
  Transmission Date: 20200713
  Serious: Yes (Hospitalization, Other)
  Sender: FDA-Public Use
  Company Number: US-ACTELION-A-NJ2018-166912

PATIENT
  Age: 71 Year
  Sex: Male
  Weight: 101.13 kg

DRUGS (3)
  1. ELIQUIS [Concomitant]
     Active Substance: APIXABAN
  2. XARELTO [Concomitant]
     Active Substance: RIVAROXABAN
  3. OPSUMIT [Suspect]
     Active Substance: MACITENTAN
     Indication: PULMONARY ARTERIAL HYPERTENSION
     Dosage: 10 MG, QD
     Route: 048
     Dates: start: 20141014

REACTIONS (19)
  - Loss of consciousness [Unknown]
  - Arthritis [Unknown]
  - Palpitations [Unknown]
  - Hypotension [Unknown]
  - Cardiac operation [Unknown]
  - Ulcer haemorrhage [Unknown]
  - Dyspnoea [Unknown]
  - Abdominal discomfort [Unknown]
  - Anaemia [Unknown]
  - Mobility decreased [Unknown]
  - Peripheral swelling [Unknown]
  - Cardiac valve disease [Unknown]
  - Fatigue [Unknown]
  - Transfusion [Unknown]
  - Walking aid user [Unknown]
  - Malaise [Unknown]
  - Fall [Unknown]
  - Gout [Unknown]
  - Weight increased [Unknown]

NARRATIVE: CASE EVENT DATE: 20181005
